FAERS Safety Report 5485920-1 (Version None)
Quarter: 2007Q4

REPORT INFORMATION
  Report Type: 
  Country: None (occurrence: None)
  Receive Date: 20071015
  Receipt Date: 20071001
  Transmission Date: 20080405
  Serious: Yes (Hospitalization)
  Sender: FDA-Public Use
  Company Number: US-SHR-US-2007-020698

PATIENT
  Age: 57 Year
  Sex: Female
  Weight: 109.75 kg

DRUGS (18)
  1. BETASERON [Suspect]
     Indication: SECONDARY PROGRESSIVE MULTIPLE SCLEROSIS
     Dosage: 8 MIU, EVERY 2D
     Route: 058
     Dates: start: 19970218
  2. BETASERON [Suspect]
     Dosage: 8 MIU, EVERY 2D
     Route: 058
  3. LYRICA [Concomitant]
     Dosage: 75 MG, 3X/DAY
  4. MIRAPEX [Concomitant]
     Dosage: .25 MG, 3X/DAY
  5. BENTYL [Concomitant]
     Dosage: 4 MG/D, UNK
  6. BENTYL [Concomitant]
     Dosage: 10 MG, 4X/DAY
  7. SYNTHROID [Concomitant]
     Dosage: 125 A?G/DAY, UNK
  8. LEXAPRO [Concomitant]
     Dosage: 20 MG/D, UNK
  9. POTASSIUM CHLORIDE [Concomitant]
     Dosage: 10 MG/D, UNK
  10. DILTIAZEM [Concomitant]
     Dosage: 240 MG/D, UNK
  11. WELLBUTRIN [Concomitant]
     Dosage: 150 MG/D, UNK
  12. LUBIPROSTONE (AMITIZA) [Concomitant]
     Dosage: 24 A?G/DAY, UNK
  13. XANAX [Concomitant]
     Dosage: .5 MG, AS REQ'D
  14. KLONOPIN [Concomitant]
     Dosage: 1 MG, 4X/DAY
  15. HYDROCODONE [Concomitant]
  16. ALBUTEROL [Concomitant]
     Dosage: UNK, AS REQ'D
     Route: 055
  17. TOPROL-XL [Concomitant]
     Dosage: 10 MG, 2X/DAY
  18. QVAR 40 [Concomitant]
     Route: 055

REACTIONS (10)
  - CHEST PAIN [None]
  - CYSTITIS NONINFECTIVE [None]
  - ENDOCARDITIS [None]
  - FLUID RETENTION [None]
  - LOSS OF CONSCIOUSNESS [None]
  - NECK PAIN [None]
  - OEDEMA PERIPHERAL [None]
  - PAIN IN EXTREMITY [None]
  - URINARY INCONTINENCE [None]
  - URINARY TRACT INFECTION [None]
